FAERS Safety Report 19267911 (Version 1)
Quarter: 2021Q2

REPORT INFORMATION
  Report Type: Spontaneous
  Country: FR (occurrence: FR)
  Receive Date: 20210518
  Receipt Date: 20210518
  Transmission Date: 20210717
  Serious: Yes (Hospitalization, Other)
  Sender: FDA-Public Use
  Company Number: FR-AUROBINDO-AUR-APL-2019-005256

PATIENT
  Age: 39 Year
  Sex: Male

DRUGS (7)
  1. QUETIAPINE. [Suspect]
     Active Substance: QUETIAPINE
     Dosage: 200 MILLIGRAM, SECOND DAY
     Route: 065
  2. LACTULOSE. [Concomitant]
     Active Substance: LACTULOSE
     Indication: LAXATIVE SUPPORTIVE CARE
     Dosage: 10 GRAM, TWO TIMES A DAY
     Route: 065
  3. PRAZEPAM [Suspect]
     Active Substance: PRAZEPAM
     Indication: PRODUCT USED FOR UNKNOWN INDICATION
     Dosage: 20 MILLIGRAM, DAY 7
     Route: 065
  4. VALPROMIDE [Concomitant]
     Active Substance: VALPROMIDE
     Indication: BIPOLAR DISORDER
     Dosage: 300 MILLIGRAM, DAY 5
     Route: 065
  5. QUETIAPINE. [Suspect]
     Active Substance: QUETIAPINE
     Indication: BIPOLAR DISORDER
     Dosage: 100 MILLIGRAM, FIRST DAY
     Route: 065
  6. QUETIAPINE. [Suspect]
     Active Substance: QUETIAPINE
     Dosage: 300 MILLIGRAM, FROM THIRD DAY
     Route: 065
  7. TROPATEPINE HCL [Suspect]
     Active Substance: TROPATEPINE HYDROCHLORIDE
     Indication: PROPHYLAXIS
     Dosage: 10 MILLIGRAM, TWO TIMES A DAY
     Route: 065

REACTIONS (3)
  - Abdominal pain [Unknown]
  - Colitis ischaemic [Unknown]
  - Constipation [Unknown]
